FAERS Safety Report 25410475 (Version 1)
Quarter: 2025Q2

REPORT INFORMATION
  Report Type: Spontaneous
  Country: CN (occurrence: CN)
  Receive Date: 20250608
  Receipt Date: 20250608
  Transmission Date: 20250716
  Serious: Yes (Hospitalization)
  Sender: BEIGENE
  Company Number: CN-BEIGENE-BGN-2025-008797

PATIENT
  Age: 70 Year
  Weight: 46 kg

DRUGS (9)
  1. TISLELIZUMAB [Suspect]
     Active Substance: TISLELIZUMAB
     Indication: Lung neoplasm malignant
  2. TISLELIZUMAB [Suspect]
     Active Substance: TISLELIZUMAB
     Route: 041
  3. TISLELIZUMAB [Suspect]
     Active Substance: TISLELIZUMAB
     Route: 041
  4. TISLELIZUMAB [Suspect]
     Active Substance: TISLELIZUMAB
  5. PACLITAXEL [Concomitant]
     Active Substance: PACLITAXEL
     Indication: Lung neoplasm malignant
     Route: 041
  6. PACLITAXEL [Concomitant]
     Active Substance: PACLITAXEL
  7. LOBAPLATIN [Concomitant]
     Active Substance: LOBAPLATIN
     Indication: Lung neoplasm malignant
     Dosage: 15 MILLIGRAM, Q3WK, D1,D8
  8. LENVATINIB [Concomitant]
     Active Substance: LENVATINIB
     Indication: Lung neoplasm malignant
     Dosage: 4 MILLIGRAM, QD
     Route: 048
  9. LENVATINIB [Concomitant]
     Active Substance: LENVATINIB
     Dosage: 4 MILLIGRAM, QD

REACTIONS (2)
  - Liver injury [Unknown]
  - Renal injury [Unknown]
